FAERS Safety Report 12771262 (Version 1)
Quarter: 2016Q3

REPORT INFORMATION
  Report Type: Spontaneous
  Country: US (occurrence: US)
  Receive Date: 20160921
  Receipt Date: 20160921
  Transmission Date: 20161109
  Serious: Yes (Death)
  Sender: FDA-Public Use
  Company Number: None

PATIENT
  Age: 58 Year
  Sex: Male
  Weight: 85.05 kg

DRUGS (8)
  1. LYRICA [Concomitant]
     Active Substance: PREGABALIN
  2. DEPAKOTE [Concomitant]
     Active Substance: DIVALPROEX SODIUM
  3. BENADRYL [Concomitant]
     Active Substance: DIPHENHYDRAMINE HYDROCHLORIDE
  4. ASPIRIN. [Concomitant]
     Active Substance: ASPIRIN
  5. MORPHINE [Suspect]
     Active Substance: MORPHINE
  6. LORAZEPAM. [Suspect]
     Active Substance: LORAZEPAM
     Indication: ANXIETY
     Dosage: 30 OTHER
     Route: 048
     Dates: start: 20150916, end: 20150919
  7. NEXIUM [Concomitant]
     Active Substance: ESOMEPRAZOLE MAGNESIUM
  8. DIFULCAN [Concomitant]

REACTIONS (3)
  - Apnoea [None]
  - Loss of consciousness [None]
  - Dyspnoea [None]

NARRATIVE: CASE EVENT DATE: 20150917
